FAERS Safety Report 6159856-7 (Version None)
Quarter: 2009Q2

REPORT INFORMATION
  Report Type: 
  Country: None (occurrence: None)
  Receive Date: 20090415
  Receipt Date: 20090331
  Transmission Date: 20091009
  Serious: Yes (Hospitalization)
  Sender: FDA-Public Use
  Company Number: 2009S1005564

PATIENT
  Age: 80 Year
  Sex: Male

DRUGS (8)
  1. MORPHINE [Suspect]
     Indication: BREAKTHROUGH PAIN
     Dosage: SEE IMAGE
     Route: 048
  2. MORPHINE [Suspect]
     Indication: PAIN
     Dosage: SEE IMAGE
     Route: 048
  3. RANITIDINE [Suspect]
     Indication: PAIN
     Dosage: 150 MG;Q12H
  4. AMITRIPTYLINE HYDROCHLORIDE [Suspect]
     Indication: PAIN
     Dosage: 25 MG;DAILY ; 50 MG;DAILY
  5. IBUPROFEN [Concomitant]
  6. ACETAMINOPHEN [Concomitant]
  7. TRAMADOL HCL [Concomitant]
  8. BISACODYL [Concomitant]

REACTIONS (9)
  - BLOOD ALBUMIN DECREASED [None]
  - CONSCIOUSNESS FLUCTUATING [None]
  - DRUG INTERACTION [None]
  - INADEQUATE ANALGESIA [None]
  - LOSS OF CONSCIOUSNESS [None]
  - OVERDOSE [None]
  - RESPIRATORY RATE DECREASED [None]
  - SEDATION [None]
  - SOMNOLENCE [None]
